FAERS Safety Report 10198779 (Version 1)
Quarter: 2014Q2

REPORT INFORMATION
  Report Type: Spontaneous
  Country: US (occurrence: None)
  Receive Date: 20140523
  Receipt Date: 20140523
  Transmission Date: 20141212
  Serious: Yes (Death)
  Sender: FDA-Public Use
  Company Number: None

PATIENT
  Age: 82 Year
  Sex: Female
  Weight: 56.7 kg

DRUGS (4)
  1. FUROSEMIDE SANDOZ [Suspect]
     Indication: OEDEMA PERIPHERAL
     Route: 048
     Dates: start: 20140402, end: 20140404
  2. VIT C [Concomitant]
  3. VITAMIN E [Concomitant]
  4. VITAMIN D [Concomitant]

REACTIONS (4)
  - Chest pain [None]
  - Malaise [None]
  - Aphagia [None]
  - Dysuria [None]
